FAERS Safety Report 7797230-8 (Version None)
Quarter: 2011Q4

REPORT INFORMATION
  Report Type: 
  Country: None (occurrence: None)
  Receive Date: 20111005
  Receipt Date: 20110928
  Transmission Date: 20120403
  Serious: Yes (Hospitalization)
  Sender: FDA-Public Use
  Company Number: PHEH2011US05375

PATIENT
  Age: 16 Year
  Sex: Male
  Weight: 31.746 kg

DRUGS (3)
  1. PULMOZYME [Concomitant]
  2. TOBI [Suspect]
     Dosage: 300 MG, BID VIA A NEBULIZATION IN A CYCLE OF 28 DAYS ON AND 28 DAYS OFF
     Dates: start: 20090331
  3. NORDITROPIN [Concomitant]

REACTIONS (1)
  - UPPER RESPIRATORY TRACT INFECTION [None]
